FAERS Safety Report 4874700-3 (Version None)
Quarter: 2006Q1

REPORT INFORMATION
  Report Type: 
  Country: None (occurrence: None)
  Receive Date: 20060106
  Receipt Date: 20050907
  Transmission Date: 20060701
  Serious: Yes (Hospitalization)
  Sender: FDA-Public Use
  Company Number: US-MERCK-0509USA00814

PATIENT
  Age: 66 Year
  Sex: Female

DRUGS (4)
  1. VIOXX [Suspect]
     Indication: OSTEOARTHRITIS
     Route: 048
     Dates: start: 19990707, end: 20000901
  2. VIOXX [Suspect]
     Route: 048
     Dates: start: 20000901, end: 20020415
  3. VIOXX [Suspect]
     Indication: FIBROMYALGIA
     Route: 048
     Dates: start: 19990707, end: 20000901
  4. VIOXX [Suspect]
     Route: 048
     Dates: start: 20000901, end: 20020415

REACTIONS (21)
  - ARTHRALGIA [None]
  - CAROTID ARTERY ANEURYSM [None]
  - COLONIC POLYP [None]
  - CORONARY ARTERY DISEASE [None]
  - DIARRHOEA [None]
  - DIVERTICULUM [None]
  - FALL [None]
  - GASTROENTERITIS VIRAL [None]
  - HEAD INJURY [None]
  - HYPERLIPIDAEMIA [None]
  - MUSCLE TWITCHING [None]
  - MUSCULOSKELETAL CHEST PAIN [None]
  - MYOCARDIAL INFARCTION [None]
  - NAUSEA [None]
  - NEUROPATHY [None]
  - OVERGROWTH BACTERIAL [None]
  - PAIN IN JAW [None]
  - RESTLESS LEGS SYNDROME [None]
  - SOMNOLENCE [None]
  - SYNCOPE VASOVAGAL [None]
  - TRANSIENT ISCHAEMIC ATTACK [None]
